FAERS Safety Report 7278113-9 (Version None)
Quarter: 2011Q1

REPORT INFORMATION
  Report Type: 
  Country: None (occurrence: None)
  Receive Date: 20110207
  Receipt Date: 20110201
  Transmission Date: 20110831
  Serious: Yes (Hospitalization)
  Sender: FDA-Public Use
  Company Number: A0661441A

PATIENT
  Age: 52 Year
  Sex: Male

DRUGS (5)
  1. LIPITOR [Concomitant]
  2. LANTUS [Concomitant]
  3. GLIPIZIDE [Concomitant]
  4. NOVOLOG [Concomitant]
  5. AVANDIA [Suspect]
     Dosage: 8MG PER DAY
     Route: 048
     Dates: start: 20011015, end: 20070420

REACTIONS (5)
  - MYOCARDIAL INFARCTION [None]
  - CORONARY ARTERY BYPASS [None]
  - ATRIOVENTRICULAR BLOCK COMPLETE [None]
  - STENT PLACEMENT [None]
  - CARDIAC DISORDER [None]
